FAERS Safety Report 6938439-2 (Version None)
Quarter: 2010Q3

REPORT INFORMATION
  Report Type: 
  Country: None (occurrence: None)
  Receive Date: 20100824
  Receipt Date: 20100820
  Transmission Date: 20110219
  Serious: Yes (Life-Threatening, Hospitalization, Disabling)
  Sender: FDA-Public Use
  Company Number: US-SANOFI-AVENTIS-2009SA000601

PATIENT
  Age: 61 Year
  Sex: Female
  Weight: 55.79 kg

DRUGS (8)
  1. INSULIN GLARGINE [Suspect]
     Route: 058
     Dates: start: 20090601, end: 20090801
  2. ASPIRIN [Concomitant]
     Dates: start: 20090501
  3. DARVOCET-N 100 [Concomitant]
     Indication: BACK PAIN
     Dosage: AS NEEDED
     Dates: start: 20000501
  4. GLUCOPHAGE [Concomitant]
     Indication: TYPE 2 DIABETES MELLITUS
  5. ZOCOR [Concomitant]
  6. CIPRO [Concomitant]
     Dates: start: 20090619, end: 20090622
  7. ALENDRONATE SODIUM [Concomitant]
     Indication: OSTEOPENIA
     Dates: start: 20090619
  8. OMEPRAZOLE [Concomitant]
     Indication: GASTRITIS
     Dosage: PRN
     Dates: start: 20090803

REACTIONS (3)
  - ADENOCARCINOMA PANCREAS [None]
  - LIVER FUNCTION TEST ABNORMAL [None]
  - PANCREATIC ENZYMES INCREASED [None]
